FAERS Safety Report 8949317 (Version 2)
Quarter: 2013Q1

REPORT INFORMATION
  Report Type: Spontaneous
  Country: ES (occurrence: ES)
  Receive Date: 20121206
  Receipt Date: 20130117
  Transmission Date: 20140127
  Serious: Yes (Hospitalization)
  Sender: FDA-Public Use
  Company Number: ES-PFIZER INC-2012298974

PATIENT
  Age: 50 Year
  Sex: Male

DRUGS (6)
  1. DOBUPAL [Suspect]
     Indication: DEPRESSION
     Dosage: 150 MG, 1X/DAY
     Route: 048
  2. LYRICA [Interacting]
     Indication: PAIN
     Dosage: 2 DF, 1X/DAY
     Route: 048
  3. TRILEPTAL [Interacting]
     Indication: PAIN
     Dosage: 300 MG, 1X/DAY
     Route: 048
     Dates: end: 20101007
  4. RAMIPRIL/HYDROCHLOROTHIAZIDE [Interacting]
     Indication: HYPERTENSION
     Dosage: 1 DF, 1X/DAY
     Route: 048
     Dates: start: 201006, end: 20100919
  5. RAMIPRIL/HYDROCHLOROTHIAZIDE [Interacting]
     Dosage: 2 DF, 1X/DAY
     Route: 048
     Dates: start: 20100920, end: 20101007
  6. OMEPRAZOLE [Concomitant]
     Dosage: 20 MG, 1X/DAY
     Route: 048
     Dates: start: 200911

REACTIONS (2)
  - Drug interaction [Recovered/Resolved]
  - Inappropriate antidiuretic hormone secretion [Recovered/Resolved]
